FAERS Safety Report 12552004 (Version 1)
Quarter: 2016Q3

REPORT INFORMATION
  Report Type: Spontaneous
  Country: US (occurrence: US)
  Receive Date: 20160713
  Receipt Date: 20160713
  Transmission Date: 20161109
  Serious: No
  Sender: FDA-Public Use
  Company Number: US-BEH-2016070611

PATIENT
  Sex: Female
  Weight: 79.37 kg

DRUGS (25)
  1. VERAPAMIL [Concomitant]
     Active Substance: VERAPAMIL HYDROCHLORIDE
  2. CLARITHROMYCIN. [Concomitant]
     Active Substance: CLARITHROMYCIN
  3. RESTASIS [Concomitant]
     Active Substance: CYCLOSPORINE
  4. LIDOCAINE                          /00033402/ [Concomitant]
     Active Substance: LIDOCAINE
  5. LOVAZA [Concomitant]
     Active Substance: OMEGA-3-ACID ETHYL ESTERS
  6. LISINOPRIL. [Concomitant]
     Active Substance: LISINOPRIL
  7. VITAMIN C [Concomitant]
     Active Substance: ASCORBIC ACID
  8. OYSTER SHELL CACIUM WITH VITAMIN D [Concomitant]
  9. ASPIRIN. [Concomitant]
     Active Substance: ASPIRIN
  10. GLUCOSAMINE CHONDROITIN MSM [Concomitant]
  11. HIZENTRA [Suspect]
     Active Substance: HUMAN IMMUNOGLOBULIN G
     Indication: IMMUNODEFICIENCY COMMON VARIABLE
     Dosage: 10 G, QW
     Route: 058
  12. PEPCID                             /00305201/ [Concomitant]
     Active Substance: ALUMINUM HYDROXIDE\MAGNESIUM CARBONATE
  13. FOLIC ACID. [Concomitant]
     Active Substance: FOLIC ACID
  14. VAGIFEM [Concomitant]
     Active Substance: ESTRADIOL
  15. MYRBETRIQ [Concomitant]
     Active Substance: MIRABEGRON
  16. ZETIA [Concomitant]
     Active Substance: EZETIMIBE
  17. SINGULAIR [Concomitant]
     Active Substance: MONTELUKAST SODIUM
  18. MULTIVITAMINS [Concomitant]
     Active Substance: VITAMINS
  19. VITAMIN B12 [Concomitant]
     Active Substance: CYANOCOBALAMIN
  20. CRANBERRY                          /01512301/ [Concomitant]
     Active Substance: CRANBERRY
  21. DIPHENHYDRAMINE. [Concomitant]
     Active Substance: DIPHENHYDRAMINE
  22. VITAMIN D3 [Concomitant]
     Active Substance: CHOLECALCIFEROL
  23. ACETAMINOPHEN. [Concomitant]
     Active Substance: ACETAMINOPHEN
  24. EPIPEN [Concomitant]
     Active Substance: EPINEPHRINE
  25. ZEGERID                            /00661201/ [Concomitant]
     Active Substance: OMEPRAZOLE

REACTIONS (3)
  - Pyrexia [Unknown]
  - Lymphoedema [Unknown]
  - Peripheral swelling [Unknown]
